FAERS Safety Report 5826196-2 (Version None)
Quarter: 2008Q3

REPORT INFORMATION
  Report Type: 
  Country: None (occurrence: None)
  Receive Date: 20080729
  Receipt Date: 20080717
  Transmission Date: 20090109
  Serious: Yes (Other)
  Sender: FDA-Public Use
  Company Number: PL-PFIZER INC-2008061118

PATIENT
  Age: 35 Year
  Sex: Female

DRUGS (1)
  1. ZELDOX (CAPSULES) [Suspect]
     Indication: SCHIZOPHRENIA

REACTIONS (3)
  - INTENTIONAL OVERDOSE [None]
  - PARTNER STRESS [None]
  - SUICIDE ATTEMPT [None]
